FAERS Safety Report 7203988-9 (Version None)
Quarter: 2010Q4

REPORT INFORMATION
  Report Type: 
  Country: None (occurrence: None)
  Receive Date: 20101230
  Receipt Date: 20101221
  Transmission Date: 20110411
  Serious: No
  Sender: FDA-Public Use
  Company Number: US-PFIZER INC-2010177096

PATIENT
  Sex: Male
  Weight: 74.376 kg

DRUGS (10)
  1. LYRICA [Suspect]
     Indication: GASTRIC DISORDER
     Dosage: 75 MG, FREQUENCY UNKNOWN
     Dates: start: 20080401, end: 20080101
  2. WELLBUTRIN [Concomitant]
     Indication: DEPRESSION
     Dosage: 150 MG, 3X/DAY
  3. BUPROPION [Concomitant]
     Indication: DEPRESSION
     Dosage: FREQUENCY: 3X/DAY,
  4. LISINOPRIL [Concomitant]
     Dosage: 40 MG, UNK
  5. LOVAZA [Concomitant]
     Dosage: 1000 MG, UNK
  6. RANITIDINE [Concomitant]
     Indication: DYSPEPSIA
     Dosage: 300 MG, UNK
  7. FEXOFENADINE HCL [Concomitant]
     Indication: NASAL CONGESTION
     Dosage: 60 MG, UNK
  8. FOLIC ACID [Concomitant]
     Dosage: 800 MG, UNK
  9. ACETYLSALICYLIC ACID [Concomitant]
  10. MELATONIN [Concomitant]
     Dosage: A QUARTER OF DF (3 MG TABLET)

REACTIONS (3)
  - ABDOMINAL PAIN UPPER [None]
  - EJACULATION DELAYED [None]
  - LIBIDO DECREASED [None]
